FAERS Safety Report 24032916 (Version 1)
Quarter: 2024Q3

REPORT INFORMATION
  Report Type: Spontaneous
  Country: GB (occurrence: GB)
  Receive Date: 20240701
  Receipt Date: 20240701
  Transmission Date: 20241017
  Serious: Yes (Other)
  Sender: MSN LABORATORIES
  Company Number: None

PATIENT

DRUGS (1)
  1. ATORVASTATIN [Suspect]
     Active Substance: ATORVASTATIN
     Indication: Blood cholesterol increased
     Dosage: 20MG ONE EVERY NIGHT
     Route: 065
     Dates: start: 20240530, end: 20240617

REACTIONS (2)
  - Impaired work ability [Unknown]
  - Amnesia [Recovering/Resolving]

NARRATIVE: CASE EVENT DATE: 20240612
